FAERS Safety Report 26051252 (Version 1)
Quarter: 2025Q4

REPORT INFORMATION
  Report Type: Report from Study
  Country: US (occurrence: US)
  Receive Date: 20251117
  Receipt Date: 20251117
  Transmission Date: 20260118
  Serious: Yes (Hospitalization)
  Sender: DR REDDYS
  Company Number: US-DRL-USA-USA/2025/11/017241

PATIENT
  Sex: Female

DRUGS (1)
  1. JAVYGTOR [Suspect]
     Active Substance: SAPROPTERIN DIHYDROCHLORIDE
     Indication: Phenylketonuria
     Dosage: 17 TABLET OF 100 MG
     Route: 048
     Dates: start: 20250625

REACTIONS (4)
  - Menstrual disorder [Recovered/Resolved]
  - Uterine leiomyoma [Recovered/Resolved]
  - Therapy cessation [Unknown]
  - Malaise [Recovered/Resolved]
